FAERS Safety Report 16019974 (Version 1)
Quarter: 2019Q1

REPORT INFORMATION
  Report Type: Spontaneous
  Country: US (occurrence: US)
  Receive Date: 20190228
  Receipt Date: 20190228
  Transmission Date: 20190418
  Serious: No
  Sender: FDA-Public Use
  Company Number: US-LEXICON PHARMACEUTICALS, INC-19-1606-00172

PATIENT
  Age: 48 Year
  Sex: Female

DRUGS (18)
  1. GABAPENTIN. [Concomitant]
     Active Substance: GABAPENTIN
  2. OXYCODONE [Concomitant]
     Active Substance: OXYCODONE
  3. ATORVASTATIN [Concomitant]
     Active Substance: ATORVASTATIN
  4. CLONAZEPAM. [Concomitant]
     Active Substance: CLONAZEPAM
  5. LORAZEPAM. [Concomitant]
     Active Substance: LORAZEPAM
  6. LOPERAMIDE [Concomitant]
     Active Substance: LOPERAMIDE
  7. OCTREOTIDE. [Concomitant]
     Active Substance: OCTREOTIDE
  8. PAROXETINE. [Concomitant]
     Active Substance: PAROXETINE
  9. LOMOTIL [Concomitant]
     Active Substance: ATROPINE SULFATE\DIPHENOXYLATE HYDROCHLORIDE
  10. NITROGLYCERINE [Concomitant]
     Active Substance: NITROGLYCERIN
  11. PROCHLORPERAZINE. [Concomitant]
     Active Substance: PROCHLORPERAZINE
  12. DILTIAZEM CD [Concomitant]
     Active Substance: DILTIAZEM
  13. HYDROCODONE BITARTRATE AND ACETAMINOPHEN [Concomitant]
     Active Substance: ACETAMINOPHEN\HYDROCODONE BITARTRATE
  14. ASPIRIN 81 [Concomitant]
     Active Substance: ASPIRIN
  15. ONDANSETRON [Concomitant]
     Active Substance: ONDANSETRON
  16. TELOTRISTAT ETHYL [Suspect]
     Active Substance: TELOTRISTAT ETHYL
     Indication: CARCINOID SYNDROME
     Route: 048
     Dates: start: 20190205
  17. ISOSORBIDE MONONITRATE ER [Concomitant]
     Active Substance: ISOSORBIDE MONONITRATE
  18. NYSTATIN. [Concomitant]
     Active Substance: NYSTATIN

REACTIONS (1)
  - Abdominal pain [Not Recovered/Not Resolved]

NARRATIVE: CASE EVENT DATE: 20190209
